FAERS Safety Report 9234463 (Version 3)
Quarter: 2013Q3

REPORT INFORMATION
  Report Type: Spontaneous
  Country: US (occurrence: US)
  Receive Date: 20130416
  Receipt Date: 20130806
  Transmission Date: 20140515
  Serious: Yes (Other)
  Sender: FDA-Public Use
  Company Number: US-GLAXOSMITHKLINE-A1019296A

PATIENT
  Age: 87 Year
  Sex: Female

DRUGS (9)
  1. ADVAIR [Suspect]
     Indication: ASTHMA
     Dosage: 1PUFF TWICE PER DAY
     Route: 055
  2. ADVAIR [Suspect]
     Indication: ASTHMA
     Dosage: 1PUFF ALTERNATE DAYS
     Route: 055
  3. ALBUTEROL [Concomitant]
  4. DIOVAN [Concomitant]
  5. WARFARIN SODIUM [Concomitant]
  6. FAMOTIDINE [Concomitant]
  7. CARVEDILOL [Concomitant]
  8. LEVOTHYROXINE [Concomitant]
  9. VITAMIN D3 [Concomitant]

REACTIONS (5)
  - Glaucoma [Not Recovered/Not Resolved]
  - Asthma [Not Recovered/Not Resolved]
  - Chest discomfort [Not Recovered/Not Resolved]
  - Wheezing [Not Recovered/Not Resolved]
  - Product quality issue [Unknown]
